FAERS Safety Report 7374257-1 (Version None)
Quarter: 2011Q1

REPORT INFORMATION
  Report Type: 
  Country: None (occurrence: None)
  Receive Date: 20110325
  Receipt Date: 20110225
  Transmission Date: 20110831
  Serious: Yes (Hospitalization)
  Sender: FDA-Public Use
  Company Number: US-BAYER-201024709NA

PATIENT
  Sex: Female
  Weight: 93.424 kg

DRUGS (5)
  1. NAPROSYN [Concomitant]
     Indication: THROMBOPHLEBITIS
     Dosage: UNK
     Route: 048
     Dates: start: 20090106
  2. ADVIL LIQUI-GELS [Concomitant]
     Dosage: UNK
     Dates: start: 20080501
  3. CLOMID [Concomitant]
     Dosage: UNK
     Dates: start: 20001101
  4. YAZ [Suspect]
     Indication: PREMENSTRUAL SYNDROME
     Dosage: UNK
     Route: 048
     Dates: end: 20090325
  5. FLEXERIL [Concomitant]
     Dosage: UNK
     Dates: start: 20080523

REACTIONS (2)
  - PULMONARY EMBOLISM [None]
  - DEEP VEIN THROMBOSIS [None]
